FAERS Safety Report 7373094-1 (Version None)
Quarter: 2011Q1

REPORT INFORMATION
  Report Type: 
  Country: None (occurrence: None)
  Receive Date: 20110324
  Receipt Date: 20110317
  Transmission Date: 20110831
  Serious: Yes (Death, Hospitalization)
  Sender: FDA-Public Use
  Company Number: TR-US-EMD SERONO, INC.-7047911

PATIENT
  Sex: Female
  Weight: 50 kg

DRUGS (4)
  1. REBIF [Suspect]
     Indication: MULTIPLE SCLEROSIS
     Route: 058
     Dates: start: 20011201, end: 20110214
  2. LIORESAL [Concomitant]
  3. SERTRALINE HYDROCHLORIDE [Concomitant]
  4. SPASMEX [Concomitant]

REACTIONS (1)
  - RENAL FAILURE [None]
